FAERS Safety Report 14547892 (Version 2)
Quarter: 2018Q2

REPORT INFORMATION
  Report Type: Spontaneous
  Country: US (occurrence: US)
  Receive Date: 20180219
  Receipt Date: 20180615
  Transmission Date: 20180711
  Serious: No
  Sender: FDA-Public Use
  Company Number: US-GLAXOSMITHKLINE-US2018GSK026646

PATIENT
  Sex: Female

DRUGS (2)
  1. ATOVAQUONE + PROGUANIL HYDROCHLORIDE TABLET [Suspect]
     Active Substance: ATOVAQUONE\PROGUANIL HYDROCHLORIDE
     Indication: BABESIOSIS
     Dosage: UNK
  2. MALARONE [Suspect]
     Active Substance: ATOVAQUONE\PROGUANIL HYDROCHLORIDE
     Indication: BABESIOSIS
     Dosage: UNK

REACTIONS (8)
  - Product substitution issue [Unknown]
  - Adverse drug reaction [Unknown]
  - Off label use [Unknown]
  - Influenza [Unknown]
  - Pruritus [Unknown]
  - Therapeutic response changed [Unknown]
  - Product use in unapproved indication [Unknown]
  - Ill-defined disorder [Unknown]

NARRATIVE: CASE EVENT DATE: 20180213
